FAERS Safety Report 9532177 (Version 1)
Quarter: 2013Q3

REPORT INFORMATION
  Report Type: Spontaneous
  Country: US (occurrence: US)
  Receive Date: 20130918
  Receipt Date: 20130918
  Transmission Date: 20140515
  Serious: No
  Sender: FDA-Public Use
  Company Number: US-BAYER-2013-111984

PATIENT
  Age: 53 Year
  Sex: Female
  Weight: 59 kg

DRUGS (3)
  1. ESTRADIOL HEMIHYDRATE (PATCH) [Suspect]
     Dosage: 01 MG, QD
     Route: 062
     Dates: start: 20130718, end: 20130724
  2. PROMETRIUM [Concomitant]
     Indication: OESTROGEN THERAPY
     Dosage: 100 MG, QD
     Route: 048
     Dates: start: 20130718
  3. FLUTICASONE [Concomitant]
     Indication: MULTIPLE ALLERGIES
     Dosage: UNK UNK, PRN
     Route: 045
     Dates: start: 200805

REACTIONS (3)
  - Application site pruritus [Not Recovered/Not Resolved]
  - Erythema [Recovered/Resolved]
  - Multiple allergies [Recovered/Resolved]
